FAERS Safety Report 9015394 (Version 1)
Quarter: 2013Q1

REPORT INFORMATION
  Report Type: Spontaneous
  Country: IT (occurrence: None)
  Receive Date: 20130103
  Receipt Date: 20130103
  Transmission Date: 20140127
  Serious: Yes (Hospitalization, Other)
  Sender: FDA-Public Use
  Company Number: 2012P1068333

PATIENT
  Age: 74 Year
  Sex: Female

DRUGS (2)
  1. LITHIUM [Suspect]
  2. CARBAMAZEPINE [Concomitant]

REACTIONS (8)
  - Electrocardiogram QT prolonged [None]
  - Electrocardiogram T wave inversion [None]
  - Nephrogenic diabetes insipidus [None]
  - Bradycardia [None]
  - Dysarthria [None]
  - Hypotension [None]
  - Syncope [None]
  - Drug level above therapeutic [None]
